FAERS Safety Report 17072227 (Version 1)
Quarter: 2019Q4

REPORT INFORMATION
  Report Type: Spontaneous
  Country: US (occurrence: US)
  Receive Date: 20191123
  Receipt Date: 20191123
  Transmission Date: 20200122
  Serious: Yes (Hospitalization, Disabling)
  Sender: FDA-Public Use
  Company Number: None

PATIENT
  Age: 43 Year
  Sex: Male
  Weight: 58.5 kg

DRUGS (2)
  1. CLONAZEPAM. [Suspect]
     Active Substance: CLONAZEPAM
     Indication: ANXIETY
     Dosage: ?          QUANTITY:90 TABLET(S);?
     Route: 048
     Dates: start: 20190615, end: 20191119
  2. ATIVAN [Concomitant]
     Active Substance: LORAZEPAM

REACTIONS (10)
  - Visual impairment [None]
  - Anxiety [None]
  - Toothache [None]
  - Muscle atrophy [None]
  - Pain [None]
  - Memory impairment [None]
  - Fatigue [None]
  - Bone disorder [None]
  - Confusional state [None]
  - Headache [None]

NARRATIVE: CASE EVENT DATE: 20180601
